FAERS Safety Report 5074170-9 (Version None)
Quarter: 2006Q3

REPORT INFORMATION
  Report Type: 
  Country: None (occurrence: None)
  Receive Date: 20060808
  Receipt Date: 20060714
  Transmission Date: 20061208
  Serious: Yes (Other)
  Sender: FDA-Public Use
  Company Number: US-BRISTOL-MYERS SQUIBB COMPANY-13443023

PATIENT
  Age: 59 Year
  Sex: Female

DRUGS (4)
  1. AVAPRO [Suspect]
  2. AVALIDE [Suspect]
  3. ATENOLOL [Concomitant]
  4. DILTIAZEM HCL [Concomitant]
     Dosage: DOSE:  120 PM AND 240 AM

REACTIONS (4)
  - BLINDNESS UNILATERAL [None]
  - CEREBRAL HAEMORRHAGE [None]
  - HAND FRACTURE [None]
  - ROAD TRAFFIC ACCIDENT [None]
